FAERS Safety Report 7420683-1 (Version None)
Quarter: 2011Q2

REPORT INFORMATION
  Report Type: 
  Country: None (occurrence: None)
  Receive Date: 20110418
  Receipt Date: 20110413
  Transmission Date: 20111010
  Serious: Yes (Other)
  Sender: FDA-Public Use
  Company Number: US-ROCHE-746046

PATIENT
  Sex: Female
  Weight: 64.9 kg

DRUGS (5)
  1. ACCUTANE [Suspect]
     Route: 065
     Dates: start: 20041001, end: 20050101
  2. ACCUTANE [Suspect]
     Route: 065
     Dates: start: 19960301, end: 19960801
  3. ACCUTANE [Suspect]
     Route: 065
     Dates: start: 19980101, end: 19980301
  4. ACCUTANE [Suspect]
     Route: 065
     Dates: start: 20040301, end: 20040701
  5. ACCUTANE [Suspect]
     Route: 065
     Dates: start: 19941101, end: 19950201

REACTIONS (5)
  - PROCTITIS [None]
  - COLITIS ULCERATIVE [None]
  - IRRITABLE BOWEL SYNDROME [None]
  - ANXIETY [None]
  - EMOTIONAL DISORDER [None]
